FAERS Safety Report 18543838 (Version 1)
Quarter: 2020Q4

REPORT INFORMATION
  Report Type: Spontaneous
  Country: US (occurrence: US)
  Receive Date: 20201124
  Receipt Date: 20201124
  Transmission Date: 20210114
  Serious: Yes (Other)
  Sender: FDA-Public Use
  Company Number: US-009507513-2011USA011330

PATIENT
  Age: 69 Year
  Sex: Female
  Weight: 54.4 kg

DRUGS (14)
  1. PREDNISONE. [Concomitant]
     Active Substance: PREDNISONE
     Indication: ARTHRALGIA
     Dosage: 5 MILLIGRAM, QD
     Dates: start: 2012
  2. HYDROCHLOROTHIAZIDE. [Concomitant]
     Active Substance: HYDROCHLOROTHIAZIDE
     Indication: JOINT SWELLING
     Dosage: 12.5 MILLIGRAM, QD
     Dates: start: 2012, end: 201504
  3. PRINIVIL [Suspect]
     Active Substance: LISINOPRIL
     Indication: NEPHROPROTECTIVE THERAPY
     Dosage: 40 MILLIGRAM, QD
     Route: 048
     Dates: start: 2012
  4. OXYCODONE [Suspect]
     Active Substance: OXYCODONE
     Indication: BACK PAIN
     Dosage: 5 MILLIGRAM
     Route: 065
     Dates: start: 2013, end: 201503
  5. OXYCODONE [Suspect]
     Active Substance: OXYCODONE
     Dosage: AS REQUIRED
     Route: 065
     Dates: start: 2013, end: 201503
  6. REMERON [Concomitant]
     Active Substance: MIRTAZAPINE
     Indication: INSOMNIA
     Dosage: 15 MILLIGRAM, QD
     Route: 048
     Dates: start: 2013
  7. PROLIA [Concomitant]
     Active Substance: DENOSUMAB
  8. NEXIUM [Suspect]
     Active Substance: ESOMEPRAZOLE MAGNESIUM
     Dosage: 20 MILLIGRAM, QD
     Route: 048
  9. PRINIVIL [Suspect]
     Active Substance: LISINOPRIL
     Indication: BLOOD PRESSURE ABNORMAL
     Dosage: 40 MILLIGRAM, QD
     Route: 048
     Dates: start: 2012
  10. NEXIUM [Suspect]
     Active Substance: ESOMEPRAZOLE MAGNESIUM
     Dosage: 40 MILLIGRAM, QD
     Route: 048
     Dates: start: 20141114, end: 20150416
  11. REMERON [Concomitant]
     Active Substance: MIRTAZAPINE
     Indication: DEPRESSION
     Dosage: 15 MILLIGRAM, QD
     Route: 048
     Dates: start: 2013
  12. NEXIUM [Suspect]
     Active Substance: ESOMEPRAZOLE MAGNESIUM
     Indication: GASTROOESOPHAGEAL REFLUX DISEASE
     Dosage: 20 MILLIGRAM, QD
     Route: 048
     Dates: end: 20141113
  13. RESTASIS [Concomitant]
     Active Substance: CYCLOSPORINE
  14. NEXIUM [Suspect]
     Active Substance: ESOMEPRAZOLE MAGNESIUM
     Dosage: 20 MILLIGRAM, QD
     Route: 048
     Dates: start: 20150417

REACTIONS (14)
  - Gastrooesophageal reflux disease [Unknown]
  - Skin tightness [Not Recovered/Not Resolved]
  - Dysphagia [Unknown]
  - Drug ineffective [Unknown]
  - Dehydration [Unknown]
  - Intentional product misuse [Not Recovered/Not Resolved]
  - Ovarian cancer [Unknown]
  - Oesophageal hypomotility [Unknown]
  - Scleroderma [Not Recovered/Not Resolved]
  - Off label use [Not Recovered/Not Resolved]
  - Mucous stools [Unknown]
  - Choking [Unknown]
  - Arthralgia [Unknown]
  - Musculoskeletal stiffness [Not Recovered/Not Resolved]

NARRATIVE: CASE EVENT DATE: 2008
